FAERS Safety Report 17866079 (Version 1)
Quarter: 2020Q2

REPORT INFORMATION
  Report Type: Spontaneous
  Country: US (occurrence: US)
  Receive Date: 20200605
  Receipt Date: 20200605
  Transmission Date: 20200714
  Serious: No
  Sender: FDA-Public Use
  Company Number: None

PATIENT
  Age: 12 Year
  Sex: Male
  Weight: 88 kg

DRUGS (3)
  1. NORDITROPIN [Concomitant]
     Active Substance: SOMATROPIN
     Dates: start: 20200101
  2. METFORMIN ER [Suspect]
     Active Substance: METFORMIN HYDROCHLORIDE
     Indication: INSULIN RESISTANCE
     Route: 048
     Dates: start: 20190406
  3. LEVOTHYROXINE. [Concomitant]
     Active Substance: LEVOTHYROXINE
     Dates: start: 20200305

REACTIONS (1)
  - Headache [None]

NARRATIVE: CASE EVENT DATE: 20200605
